FAERS Safety Report 4412564-2 (Version None)
Quarter: 2004Q3

REPORT INFORMATION
  Report Type: 
  Country: None (occurrence: None)
  Receive Date: 20040731
  Receipt Date: 20040723
  Transmission Date: 20050211
  Serious: Yes (Hospitalization)
  Sender: FDA-Public Use
  Company Number: US-MERCK-0407USA02221

PATIENT
  Age: 80 Year
  Sex: Male

DRUGS (4)
  1. ASPIRIN [Concomitant]
     Route: 065
  2. PROSCAR [Suspect]
     Indication: PROSTATISM
     Route: 048
     Dates: start: 20040101
  3. PROSCAR [Suspect]
     Route: 048
     Dates: start: 20040101, end: 20040101
  4. SYNTHROID [Concomitant]
     Route: 065

REACTIONS (4)
  - ACCIDENTAL OVERDOSE [None]
  - ARRHYTHMIA [None]
  - BLOOD PRESSURE DECREASED [None]
  - CONVULSION [None]
